FAERS Safety Report 25051022 (Version 1)
Quarter: 2025Q1

REPORT INFORMATION
  Report Type: Spontaneous
  Country: US (occurrence: US)
  Receive Date: 20250307
  Receipt Date: 20250307
  Transmission Date: 20250408
  Serious: No
  Sender: COLGATE
  Company Number: US-COLGATE PALMOLIVE COMPANY-20240801275

PATIENT
  Sex: Male

DRUGS (2)
  1. PERIOGARD ALCOHOL FREE [Suspect]
     Active Substance: CHLORHEXIDINE GLUCONATE
     Dates: start: 202408
  2. PREVIDENT 5000 BOOSTER PLUS SPEARMINT [Suspect]
     Active Substance: SODIUM FLUORIDE
     Dates: start: 202408

REACTIONS (1)
  - Tooth discolouration [Unknown]

NARRATIVE: CASE EVENT DATE: 20240801
